FAERS Safety Report 6774889-5 (Version None)
Quarter: 2010Q2

REPORT INFORMATION
  Report Type: 
  Country: None (occurrence: None)
  Receive Date: 20100616
  Receipt Date: 20100616
  Transmission Date: 20101027
  Serious: No
  Sender: FDA-Public Use
  Company Number: None

PATIENT
  Age: 58 Year
  Sex: Female
  Weight: 65.7716 kg

DRUGS (1)
  1. BETASERON INTERFERON BETA-B BAYER HEALTHCARE PHARMACEUTICALS [Suspect]
     Indication: MULTIPLE SCLEROSIS
     Dosage: 1 ML. EVERY OTHER DAY SQ
     Route: 058
     Dates: start: 20020801, end: 20100611

REACTIONS (1)
  - PRODUCT QUALITY ISSUE [None]
